FAERS Safety Report 12844139 (Version 4)
Quarter: 2018Q3

REPORT INFORMATION
  Report Type: Spontaneous
  Country: US (occurrence: US)
  Receive Date: 20161013
  Receipt Date: 20180904
  Transmission Date: 20181010
  Serious: Yes (Hospitalization)
  Sender: FDA-Public Use
  Company Number: US-PFIZER INC-2014351543

PATIENT
  Age: 76 Year
  Sex: Male
  Weight: 74.83 kg

DRUGS (24)
  1. FLONASE [Concomitant]
     Active Substance: FLUTICASONE PROPIONATE
     Dosage: 50 UG, 2X/DAY (1 SPRAY BY NASAL ROUTE 2 (TWO) TIMES DAILY)
     Route: 045
  2. RESTORIL [Concomitant]
     Active Substance: TEMAZEPAM
     Dosage: 30 MG, 1X/DAY (NIGHTLY)
     Route: 048
  3. VITAMIN D3 [Concomitant]
     Active Substance: CHOLECALCIFEROL
     Dosage: 2000 IU, DAILY
     Route: 048
  4. DULCOLAX NOS [Concomitant]
     Active Substance: BISACODYL OR DOCUSATE SODIUM
     Dosage: 5 MG, 2X/WEEK EVERY MONDAY AND THURSDAY
     Route: 048
  5. CALCIUM CARBONATE ? VITAMIN D2 [Concomitant]
     Dosage: 200 IU, DAILY (CALCIUM CARBONATE 500 MG)/VITAMIN D2: 1250 MG 200 UNIT
     Route: 048
  6. SIMVASTATIN. [Concomitant]
     Active Substance: SIMVASTATIN
     Dosage: 40 MG, 1X/DAY
  7. ULTRAM [Concomitant]
     Active Substance: TRAMADOL HYDROCHLORIDE
     Indication: SCIATICA
  8. ADVAIR HFA [Concomitant]
     Active Substance: FLUTICASONE PROPIONATE\SALMETEROL XINAFOATE
     Dosage: FLUTICASONE 250 MCG/SALBUTAMOL 50 MCG (INHALE 2 PUFFS INTO THE LUNGS DAILY
     Route: 055
  9. COENZYME Q10 [Concomitant]
     Active Substance: UBIDECARENONE
     Dosage: 300 MG, DAILY, (HOLD WHILE IN HOSPITAL PER HERBAL/NUTRITIONAL POLICY)
     Route: 048
  10. TEMAZEPAM. [Concomitant]
     Active Substance: TEMAZEPAM
     Indication: INSOMNIA
     Dosage: 30 MG, AS NEEDED
  11. MICROZIDE [Concomitant]
     Active Substance: HYDROCHLOROTHIAZIDE
     Dosage: 12.5 MG, DAILY
     Route: 048
  12. LASIX [Concomitant]
     Active Substance: FUROSEMIDE
     Dosage: 20 MG, DAILY
     Route: 048
  13. ULTRAM [Concomitant]
     Active Substance: TRAMADOL HYDROCHLORIDE
     Indication: BACK PAIN
     Dosage: 50 MG, AS NEEDED
     Route: 048
  14. PROSCAR [Concomitant]
     Active Substance: FINASTERIDE
     Dosage: 5 MG, DAILY
     Route: 048
  15. WELLBUTRIN XL [Concomitant]
     Active Substance: BUPROPION HYDROCHLORIDE
     Dosage: 300 MG, DAILY
     Route: 048
  16. BIOTIN [Concomitant]
     Active Substance: BIOTIN
     Dosage: 5000 UG, DAILY
     Route: 048
  17. FINASTERIDE. [Concomitant]
     Active Substance: FINASTERIDE
     Indication: PROSTATE CANCER
     Dosage: 5 MG, DAILY
  18. ZOCOR [Concomitant]
     Active Substance: SIMVASTATIN
     Dosage: 40 MG, 1X/DAY (NIGHTLY)
     Route: 048
  19. BUPROPION HYDROCHLORIDE. [Concomitant]
     Active Substance: BUPROPION HYDROCHLORIDE
     Dosage: 300 MG, 1X/DAY
  20. TYLENOL [Concomitant]
     Active Substance: ACETAMINOPHEN
     Dosage: 500 MG DAILY AS NEEDED
     Route: 048
  21. COMBIVENT [Concomitant]
     Active Substance: ALBUTEROL SULFATE\IPRATROPIUM BROMIDE
     Dosage: ALBUTEROL 103 MCG/IPRATROPIUM 18 MCG, INHALE 2 PUFFS INTO THE LUNGS DAILY, EXCEPT SATURDAY
     Route: 055
  22. REVATIO [Suspect]
     Active Substance: SILDENAFIL CITRATE
     Indication: PULMONARY HYPERTENSION
     Dosage: 80 MG, 3X/DAY (ONE AT 5AM, ONE AT 1PM AND ONE AT 9PM)/ (12 TABLETS PER DAY)
     Route: 048
  23. WARFARIN [Suspect]
     Active Substance: WARFARIN
     Dosage: UNK
     Dates: end: 201610
  24. COMBIVENT RESPIMAT [Concomitant]
     Active Substance: ALBUTEROL SULFATE\IPRATROPIUM BROMIDE
     Dosage: IPRATROPIUM BROMIDE 20 MCG/SALBUTAMOL SULFATE 100 MCG ACTUATION MIST INHALER 2 PUFFS AS NEEDED
     Route: 055
     Dates: start: 20160201

REACTIONS (5)
  - Internal haemorrhage [Recovered/Resolved]
  - Gastrointestinal arteriovenous malformation [Unknown]
  - Prescribed overdose [Unknown]
  - Dyspnoea [Recovering/Resolving]
  - Anaemia [Recovering/Resolving]

NARRATIVE: CASE EVENT DATE: 201608
